FAERS Safety Report 5418176-6 (Version None)
Quarter: 2007Q3

REPORT INFORMATION
  Report Type: 
  Country: None (occurrence: None)
  Receive Date: 20070817
  Receipt Date: 20070809
  Transmission Date: 20080115
  Serious: Yes (Other)
  Sender: FDA-Public Use
  Company Number: GB-ASTRAZENECA-2007GB01420

PATIENT
  Age: 32637 Day
  Sex: Male

DRUGS (5)
  1. SEROQUEL [Suspect]
     Indication: ABNORMAL BEHAVIOUR
     Route: 048
     Dates: start: 20040416, end: 20070705
  2. SEROQUEL [Suspect]
     Indication: AGITATION
     Route: 048
     Dates: start: 20040416, end: 20070705
  3. SEROQUEL [Suspect]
     Indication: HALLUCINATION
     Route: 048
     Dates: start: 20040416, end: 20070705
  4. THIAMINE [Concomitant]
     Indication: ALCOHOLISM
     Route: 048
     Dates: start: 20060101
  5. CODEINE PHOSPHATE AND ACETAMINOPHEN [Concomitant]
     Indication: PAIN
     Dosage: 30/500
     Route: 048
     Dates: start: 20040101

REACTIONS (3)
  - ANAEMIA [None]
  - NEUTROPENIA [None]
  - THROMBOCYTOPENIA [None]
